FAERS Safety Report 9045733 (Version 1)
Quarter: 2013Q1

REPORT INFORMATION
  Report Type: Report from Study
  Country: US (occurrence: US)
  Receive Date: 20130131
  Receipt Date: 20130131
  Transmission Date: 20140127
  Serious: No
  Sender: FDA-Public Use
  Company Number: US-ABBOTT-12P-163-0993592-00

PATIENT
  Age: 73 None
  Sex: Female

DRUGS (9)
  1. HUMIRA [Suspect]
     Route: 058
     Dates: start: 20111114, end: 20121008
  2. HUMIRA [Suspect]
     Route: 058
     Dates: start: 20121015
  3. PREMPRO [Concomitant]
     Indication: HORMONE REPLACEMENT THERAPY
     Dosage: 0.3 MG/1.5 MG 1 DAILY (HORMONES)
  4. OSCAL D [Concomitant]
     Indication: VITAMIN SUPPLEMENTATION
     Dosage: DAILY
  5. NEXIUM [Concomitant]
     Indication: GASTROOESOPHAGEAL REFLUX DISEASE
  6. METOPROLOL [Concomitant]
     Indication: BLOOD PRESSURE
     Dosage: DAILY
  7. LEVOTHYROXINE [Concomitant]
     Indication: THYROID DISORDER
  8. LIPITOR [Concomitant]
     Indication: BLOOD CHOLESTEROL
     Dosage: 10 MG 1 HOUR OF SLEEP
  9. MULTIPLE VITAMINS [Concomitant]
     Indication: PRODUCT USED FOR UNKNOWN INDICATION
     Dosage: DAILY

REACTIONS (11)
  - Pyrexia [Not Recovered/Not Resolved]
  - Cough [Not Recovered/Not Resolved]
  - Oropharyngeal pain [Not Recovered/Not Resolved]
  - Headache [Not Recovered/Not Resolved]
  - Injection site pain [Recovered/Resolved]
  - Injection site bruising [Recovered/Resolved]
  - Hypothyroidism [Recovered/Resolved]
  - Frequent bowel movements [Recovered/Resolved]
  - Injection site pain [Recovered/Resolved]
  - Injection site extravasation [Recovered/Resolved]
  - Injection site extravasation [Recovered/Resolved]
